FAERS Safety Report 12885334 (Version 1)
Quarter: 2016Q4

REPORT INFORMATION
  Report Type: Spontaneous
  Country: US (occurrence: US)
  Receive Date: 20161025
  Receipt Date: 20161025
  Transmission Date: 20170207
  Serious: Yes (Other)
  Sender: FDA-Public Use
  Company Number: None

PATIENT
  Age: 68 Year
  Sex: Male
  Weight: 91 kg

DRUGS (10)
  1. GEMFIBROZIL. [Suspect]
     Active Substance: GEMFIBROZIL
     Indication: BLOOD TRIGLYCERIDES INCREASED
     Dosage: 600 MG/M 2 MILLIEGRAMS SQ. METTER  TICE A DAY
     Route: 048
     Dates: start: 20160324, end: 20161024
  2. OLANZAPINE. [Concomitant]
     Active Substance: OLANZAPINE
  3. TAMSULOSIN [Concomitant]
     Active Substance: TAMSULOSIN
  4. AMYLASE/LIPASE [Concomitant]
  5. ASA [Concomitant]
     Active Substance: ASPIRIN
  6. CHOLECALCIFEROL [Concomitant]
     Active Substance: CHOLECALCIFEROL
  7. ABACAVIR/DOLUTEGRAVIR/LAMIVUDINE [Concomitant]
     Active Substance: ABACAVIR SULFATE\DOLUTEGRAVIR SODIUM\LAMIVUDINE
  8. NIFEDIPINE. [Concomitant]
     Active Substance: NIFEDIPINE
  9. FLUOXETINE [Concomitant]
     Active Substance: FLUOXETINE HYDROCHLORIDE
  10. ACETAMINOPHEN. [Concomitant]
     Active Substance: ACETAMINOPHEN

REACTIONS (2)
  - Therapy cessation [None]
  - Blood creatine decreased [None]

NARRATIVE: CASE EVENT DATE: 20161024
